FAERS Safety Report 24301965 (Version 1)
Quarter: 2024Q3

REPORT INFORMATION
  Report Type: Spontaneous
  Country: CA (occurrence: CA)
  Receive Date: 20240910
  Receipt Date: 20240910
  Transmission Date: 20241017
  Serious: Yes (Hospitalization)
  Sender: MYLAN
  Company Number: CA-MYLANLABS-2024M1082213

PATIENT
  Age: 53 Year
  Sex: Male

DRUGS (13)
  1. VALACYCLOVIR HYDROCHLORIDE [Suspect]
     Active Substance: VALACYCLOVIR HYDROCHLORIDE
     Indication: Superinfection bacterial
     Dosage: UNK
     Route: 048
  2. VALACYCLOVIR HYDROCHLORIDE [Suspect]
     Active Substance: VALACYCLOVIR HYDROCHLORIDE
     Indication: Oral herpes
     Dosage: UNK, HIGH DOSE
     Route: 065
  3. ACYCLOVIR [Suspect]
     Active Substance: ACYCLOVIR
     Indication: Oral herpes
     Dosage: 10 MILLIGRAM/KILOGRAM, Q8H
     Route: 042
     Dates: start: 2017
  4. IMIQUIMOD [Suspect]
     Active Substance: IMIQUIMOD
     Indication: Oral herpes
     Dosage: UNK
     Route: 061
     Dates: start: 2018
  5. CIDOFOVIR [Suspect]
     Active Substance: CIDOFOVIR
     Indication: Oral herpes
     Dosage: UNK
     Route: 061
     Dates: start: 2020
  6. CIDOFOVIR [Suspect]
     Active Substance: CIDOFOVIR
     Indication: Oral herpes
     Dosage: UNK
     Route: 042
     Dates: start: 2020
  7. ABACAVIR [Concomitant]
     Active Substance: ABACAVIR
     Indication: HIV infection
     Dosage: UNK
     Route: 065
  8. LAMIVUDINE [Concomitant]
     Active Substance: LAMIVUDINE
     Indication: HIV infection
     Dosage: UNK
     Route: 065
  9. DOLUTEGRAVIR [Concomitant]
     Active Substance: DOLUTEGRAVIR
     Indication: HIV infection
     Dosage: UNK
     Route: 065
  10. CEPHALEXIN [Concomitant]
     Active Substance: CEPHALEXIN
     Indication: Antibiotic therapy
     Dosage: UNK
     Route: 048
  11. FOSCARNET [Concomitant]
     Active Substance: FOSCARNET
     Indication: Oral herpes
     Dosage: 90 MILLIGRAM/KILOGRAM, BID
     Route: 042
  12. FOSCARNET [Concomitant]
     Active Substance: FOSCARNET
     Dosage: UNK
     Route: 042
     Dates: start: 2019
  13. FOSCARNET [Concomitant]
     Active Substance: FOSCARNET
     Indication: Oral herpes
     Dosage: UNK
     Route: 061
     Dates: start: 2018

REACTIONS (2)
  - Drug resistance [Unknown]
  - Drug ineffective [Unknown]
